FAERS Safety Report 21532399 (Version 1)
Quarter: 2022Q4

REPORT INFORMATION
  Report Type: Spontaneous
  Country: US (occurrence: US)
  Receive Date: 20221101
  Receipt Date: 20221101
  Transmission Date: 20230113
  Serious: No
  Sender: FDA-Public Use
  Company Number: US-BRISTOL-MYERS SQUIBB COMPANY-2022-128284

PATIENT
  Age: 92 Year
  Sex: Female

DRUGS (7)
  1. ELIQUIS [Suspect]
     Active Substance: APIXABAN
     Indication: Cerebrovascular accident prophylaxis
     Dosage: FREQ: 2.5MG IN THE MORNING AND 2.5MG IN THE EVENING 12 HOURS LATER.
     Route: 065
     Dates: start: 20220819
  2. MENADIONE [Concomitant]
     Active Substance: MENADIONE
  3. SENNA [Concomitant]
     Active Substance: SENNA LEAF\SENNOSIDES\SENNOSIDES A AND B
  4. AMIODARONE [Concomitant]
     Active Substance: AMIODARONE
     Dosage: AMIODARON 200 MG ONCE A DAY CUT IT IN HALF
  5. MIRALAX [Concomitant]
     Active Substance: POLYETHYLENE GLYCOL 3350
  6. METOPROLOL [Concomitant]
     Active Substance: METOPROLOL
  7. CALCIUM [Concomitant]
     Active Substance: CALCIUM

REACTIONS (12)
  - Malaise [Unknown]
  - Functional gastrointestinal disorder [Unknown]
  - Haemorrhoids [Unknown]
  - Off label use [Unknown]
  - Muscular weakness [Unknown]
  - Contusion [Unknown]
  - Memory impairment [Unknown]
  - Anaemia [Unknown]
  - Infection [Unknown]
  - Burning sensation [Unknown]
  - Wound haemorrhage [Unknown]
  - Palpitations [Unknown]
